FAERS Safety Report 7562522-4 (Version None)
Quarter: 2011Q2

REPORT INFORMATION
  Report Type: 
  Country: None (occurrence: None)
  Receive Date: 20110621
  Receipt Date: 20110621
  Transmission Date: 20111010
  Serious: Yes (Other)
  Sender: FDA-Public Use
  Company Number: None

PATIENT
  Sex: Male
  Weight: 10.4327 kg

DRUGS (1)
  1. AMOXICILLIN [Suspect]
     Indication: PNEUMONIA
     Dosage: 1 TEASPOON 3 TIMES DAILY PO
     Route: 048

REACTIONS (4)
  - DIARRHOEA [None]
  - RETCHING [None]
  - REACTION TO DRUG EXCIPIENTS [None]
  - VOMITING [None]
